FAERS Safety Report 7637482-8 (Version None)
Quarter: 2011Q3

REPORT INFORMATION
  Report Type: 
  Country: None (occurrence: None)
  Receive Date: 20110726
  Receipt Date: 20110714
  Transmission Date: 20111222
  Serious: Yes (Hospitalization)
  Sender: FDA-Public Use
  Company Number: PHHY2011US63821

PATIENT
  Sex: Male

DRUGS (1)
  1. EXJADE [Suspect]
     Indication: IRON METABOLISM DISORDER
     Dosage: 2000 MG, QD
     Route: 048

REACTIONS (3)
  - CONFUSIONAL STATE [None]
  - AMMONIA INCREASED [None]
  - HEPATIC ENCEPHALOPATHY [None]
